FAERS Safety Report 16345195 (Version 1)
Quarter: 2019Q2

REPORT INFORMATION
  Report Type: Spontaneous
  Country: US (occurrence: US)
  Receive Date: 20190523
  Receipt Date: 20190523
  Transmission Date: 20190711
  Serious: No
  Sender: FDA-Public Use
  Company Number: US-CIPLA LTD.-2019US01606

PATIENT

DRUGS (5)
  1. TESTOSTERONE. [Suspect]
     Active Substance: TESTOSTERONE
     Indication: BLOOD TESTOSTERONE DECREASED
     Dosage: 2 MILLILITER ONCE A WEEK
     Route: 030
     Dates: start: 20190118, end: 2019
  2. MIRTAZAPINE. [Concomitant]
     Active Substance: MIRTAZAPINE
     Indication: INSOMNIA
     Dosage: 45 MILLIGRAM, QD (ONCE DAILY)
     Route: 065
  3. DIVALPROEX [Concomitant]
     Active Substance: DIVALPROEX SODIUM
     Indication: AFFECTIVE DISORDER
     Dosage: 250 MILLIGRAM, BID (TWO TABLETS TWICE A DAY)
     Route: 065
     Dates: start: 201807
  4. VENLAFAXINE XR [Concomitant]
     Active Substance: VENLAFAXINE HYDROCHLORIDE
     Indication: DEPRESSION
     Dosage: 37.5 MILLIGRAM, QD (ONCE A DAY)
     Route: 065
  5. SIMVASTATIN. [Concomitant]
     Active Substance: SIMVASTATIN
     Indication: BLOOD CHOLESTEROL INCREASED
     Dosage: 20 MILLIGRAM, QD (ONCE A DAY) FROM SEVERAL YEARS
     Route: 065

REACTIONS (2)
  - Injection site pain [Recovered/Resolved]
  - Product deposit [Unknown]

NARRATIVE: CASE EVENT DATE: 201902
